FAERS Safety Report 24946513 (Version 2)
Quarter: 2025Q2

REPORT INFORMATION
  Report Type: Spontaneous
  Country: US (occurrence: US)
  Receive Date: 20250210
  Receipt Date: 20250406
  Transmission Date: 20250716
  Serious: No
  Sender: BAUSCH AND LOMB
  Company Number: US-BAUSCHBL-2025BNL001771

PATIENT
  Age: 80 Year
  Sex: Female

DRUGS (3)
  1. MIEBO [Suspect]
     Active Substance: PERFLUOROHEXYLOCTANE
     Indication: Postoperative care
     Route: 047
     Dates: start: 20250105, end: 20250126
  2. MIEBO [Suspect]
     Active Substance: PERFLUOROHEXYLOCTANE
     Dosage: LAST DOSE WAS ON 26/JAN/2025.
     Route: 047
     Dates: start: 202501, end: 20250126
  3. XIIDRA [Suspect]
     Active Substance: LIFITEGRAST
     Indication: Product used for unknown indication
     Route: 065
     Dates: start: 2024

REACTIONS (3)
  - Eye irritation [Unknown]
  - Product complaint [Unknown]
  - Intentional product use issue [Unknown]

NARRATIVE: CASE EVENT DATE: 20250101
